FAERS Safety Report 20667058 (Version 1)
Quarter: 2022Q2

REPORT INFORMATION
  Report Type: Spontaneous
  Country: US (occurrence: US)
  Receive Date: 20220404
  Receipt Date: 20220404
  Transmission Date: 20220721
  Serious: Yes (Death, Other)
  Sender: FDA-Public Use
  Company Number: US-BRISTOL-MYERS SQUIBB COMPANY-2022-012645

PATIENT
  Age: 67 Year
  Sex: Male

DRUGS (1)
  1. REVLIMID [Suspect]
     Active Substance: LENALIDOMIDE
     Indication: Remission not achieved
     Dosage: 21 DAYS ON 7 DAYS OFF
     Route: 048
     Dates: start: 20211220, end: 20220317

REACTIONS (1)
  - Death [Fatal]

NARRATIVE: CASE EVENT DATE: 20220317
